FAERS Safety Report 9882431 (Version 1)
Quarter: 2014Q1

REPORT INFORMATION
  Report Type: Spontaneous
  Country: IT (occurrence: IT)
  Receive Date: 20140207
  Receipt Date: 20140207
  Transmission Date: 20141002
  Serious: Yes (Death, Other)
  Sender: FDA-Public Use
  Company Number: PHHY2014IT012273

PATIENT
  Age: 69 Year
  Sex: Female

DRUGS (17)
  1. LETROZOLE [Suspect]
     Indication: BREAST CANCER
  2. EPIRUBICIN [Suspect]
     Dosage: 25 MG/M2. WEEKLY
  3. PACLITAXEL [Suspect]
     Dosage: 80 MG/M2, WEEKLY ((WEEKS 1?6 EVERY 8 WEEKS)
  4. GEMCITABINE [Suspect]
     Dosage: 1000 MG/M2 (DAYS 1AND 8 EVERY 21 DAYS)
     Dates: start: 201004, end: 201007
  5. CAPECITABINE [Suspect]
     Indication: LIVER DISORDER
     Dosage: 2000 MG, (DAILY FOR 14 DAYS EVERY 21 DAYS)
     Dates: start: 201009
  6. CATUMAXOMAB [Suspect]
     Dosage: UNK
     Route: 033
     Dates: start: 20100202
  7. CATUMAXOMAB [Suspect]
     Route: 033
     Dates: start: 20100205
  8. CATUMAXOMAB [Suspect]
     Route: 033
     Dates: start: 20100209
  9. CATUMAXOMAB [Suspect]
     Route: 033
     Dates: start: 20100212
  10. CATUMAXOMAB [Suspect]
     Route: 033
     Dates: start: 201004
  11. CATUMAXOMAB [Suspect]
     Route: 033
  12. CATUMAXOMAB [Suspect]
     Route: 033
     Dates: start: 201007
  13. CATUMAXOMAB [Suspect]
     Route: 033
     Dates: end: 201007
  14. MEGESTROL [Suspect]
     Dates: start: 200901, end: 200906
  15. METHOTREXATE [Concomitant]
     Indication: BREAST CANCER METASTATIC
     Dosage: 40 MG/M2
  16. CYCLOPHOSPHAMIDE [Concomitant]
     Indication: BREAST CANCER METASTATIC
     Dosage: 600 MG/M2
  17. 5 FLUORO URACIL [Concomitant]
     Indication: BREAST CANCER METASTATIC
     Dosage: 600 MG/M2

REACTIONS (15)
  - Death [Fatal]
  - Metastases to gastrointestinal tract [Unknown]
  - Metastases to liver [Unknown]
  - Pleural disorder [Unknown]
  - Ascites [Unknown]
  - Dyspnoea [Unknown]
  - Abdominal distension [Recovering/Resolving]
  - Pain [Recovering/Resolving]
  - Pyrexia [Unknown]
  - Decreased appetite [Recovering/Resolving]
  - Liver disorder [Unknown]
  - Nausea [Unknown]
  - Vomiting [Unknown]
  - Abdominal pain [Unknown]
  - Therapeutic response decreased [Unknown]
